FAERS Safety Report 16494985 (Version 3)
Quarter: 2019Q3

REPORT INFORMATION
  Report Type: Spontaneous
  Country: US (occurrence: US)
  Receive Date: 20190628
  Receipt Date: 20190909
  Transmission Date: 20191004
  Serious: No
  Sender: FDA-Public Use
  Company Number: US-SA-2019SA175156

PATIENT
  Sex: Female

DRUGS (15)
  1. VITAMIN B6 [Concomitant]
     Active Substance: PYRIDOXINE HYDROCHLORIDE
  2. CLOBETASOL [Concomitant]
     Active Substance: CLOBETASOL
  3. MINOCYCLINE [Concomitant]
     Active Substance: MINOCYCLINE HYDROCHLORIDE
  4. ALENDRONATE [Concomitant]
     Active Substance: ALENDRONATE SODIUM
  5. MUPIROCIN. [Concomitant]
     Active Substance: MUPIROCIN
  6. DUPIXENT [Suspect]
     Active Substance: DUPILUMAB
     Indication: DERMATITIS ATOPIC
     Dosage: 300 MG, QOW
     Route: 058
  7. ZINC. [Concomitant]
     Active Substance: ZINC
  8. VITAMIN B COMPLEX [Concomitant]
     Active Substance: CYANOCOBALAMIN\DEXPANTHENOL\NIACINAMIDE\PYRIDOXINE HYDROCHLORIDE\RIBOFLAVIN 5^-PHOSPHATE SODIUM\THIAMINE HYDROCHLORIDE\VITAMIN B COMPLEX
  9. VITAMIN C [Concomitant]
     Active Substance: ASCORBIC ACID
  10. LYSINE [Concomitant]
     Active Substance: LYSINE
  11. VITAMIN D [VITAMIN D NOS] [Concomitant]
     Active Substance: VITAMIN D NOS
  12. VITAMIN E NOS [Concomitant]
     Active Substance: .ALPHA.-TOCOPHEROL
  13. PRESERVISION AREDS [Concomitant]
     Active Substance: MINERALS\VITAMINS
  14. SELENIUM [Concomitant]
     Active Substance: SELENIUM
  15. HYDROCORTISONE. [Concomitant]
     Active Substance: HYDROCORTISONE

REACTIONS (4)
  - Conjunctivitis [Unknown]
  - Oropharyngeal pain [Unknown]
  - Extra dose administered [Unknown]
  - Eye pruritus [Unknown]
